FAERS Safety Report 5242008-2 (Version None)
Quarter: 2007Q1

REPORT INFORMATION
  Report Type: 
  Country: None (occurrence: None)
  Receive Date: 20070220
  Receipt Date: 20070208
  Transmission Date: 20070707
  Serious: Yes (Life-Threatening, Hospitalization)
  Sender: FDA-Public Use
  Company Number: SE-PFIZER INC-2006150543

PATIENT
  Sex: Male
  Weight: 60 kg

DRUGS (5)
  1. LYRICA [Suspect]
     Indication: NEURALGIA
     Route: 048
     Dates: start: 20061116, end: 20061124
  2. LYRICA [Suspect]
     Indication: HERPES ZOSTER
  3. ALVEDON [Suspect]
     Indication: HERPES ZOSTER
     Dosage: TEXT:1 G X 3
  4. TRADOLAN [Concomitant]
  5. POTASSIUM ACETATE [Concomitant]
     Route: 048

REACTIONS (4)
  - ACUTE HEPATIC FAILURE [None]
  - CHROMATURIA [None]
  - LIVER FUNCTION TEST ABNORMAL [None]
  - NAUSEA [None]
